FAERS Safety Report 11457927 (Version 2)
Quarter: 2015Q3

REPORT INFORMATION
  Report Type: Spontaneous
  Country: US (occurrence: US)
  Receive Date: 20150904
  Receipt Date: 20150916
  Transmission Date: 20151125
  Serious: Yes (Other)
  Sender: FDA-Public Use
  Company Number: US-BIOGENIDEC-2015BI120947

PATIENT
  Sex: Female

DRUGS (26)
  1. BACLOFEN. [Concomitant]
     Active Substance: BACLOFEN
  2. PROPRANOLOL [Concomitant]
     Active Substance: PROPRANOLOL\PROPRANOLOL HYDROCHLORIDE
  3. BUTALBITAL-ACETAMINOPHEN-CAFFEINE [Concomitant]
  4. SERTRALINE [Concomitant]
     Active Substance: SERTRALINE HYDROCHLORIDE
  5. VITAMIN A [Concomitant]
     Active Substance: VITAMIN A
  6. HYDROCODONE BITARTRATE AND ACETAMINOPHEN [Concomitant]
     Active Substance: ACETAMINOPHEN\HYDROCODONE BITARTRATE
  7. AVONEX [Suspect]
     Active Substance: INTERFERON BETA-1A
     Indication: MULTIPLE SCLEROSIS
  8. HYDROCHLOROTHIAZIDE. [Concomitant]
     Active Substance: HYDROCHLOROTHIAZIDE
     Indication: SWELLING
  9. BACLOFEN. [Concomitant]
     Active Substance: BACLOFEN
  10. AMPYRA [Concomitant]
     Active Substance: DALFAMPRIDINE
     Indication: MULTIPLE SCLEROSIS
     Route: 048
     Dates: start: 20150625
  11. MODAFINIL. [Concomitant]
     Active Substance: MODAFINIL
  12. PROMETHEGAN [Concomitant]
     Active Substance: PROMETHAZINE HYDROCHLORIDE
  13. METRONIDAZOL [Concomitant]
     Active Substance: METRONIDAZOLE
  14. ZOLPIDEM [Concomitant]
     Active Substance: ZOLPIDEM\ZOLPIDEM TARTRATE
  15. AMBIEN [Concomitant]
     Active Substance: ZOLPIDEM TARTRATE
     Indication: INSOMNIA
  16. CAMBIA [Concomitant]
     Active Substance: DICLOFENAC POTASSIUM
     Indication: MIGRAINE
  17. GABAPENTIN. [Concomitant]
     Active Substance: GABAPENTIN
  18. AMOXICILLIN. [Concomitant]
     Active Substance: AMOXICILLIN
  19. XANAX [Concomitant]
     Active Substance: ALPRAZOLAM
  20. FLUTICASONE [Concomitant]
     Active Substance: FLUTICASONE\FLUTICASONE PROPIONATE
  21. DIVALPROEX [Concomitant]
     Active Substance: DIVALPROEX SODIUM
  22. DIVALPROEX [Concomitant]
     Active Substance: DIVALPROEX SODIUM
  23. EFFEXOR [Concomitant]
     Active Substance: VENLAFAXINE HYDROCHLORIDE
     Indication: DEPRESSION
  24. VITAMIN D [Concomitant]
     Active Substance: CHOLECALCIFEROL
  25. LORAZEPAM. [Concomitant]
     Active Substance: LORAZEPAM
  26. CYCLOBENZAPRINE [Concomitant]
     Active Substance: CYCLOBENZAPRINE

REACTIONS (2)
  - Multiple sclerosis [Unknown]
  - Seizure [Recovered/Resolved]
